FAERS Safety Report 22857081 (Version 2)
Quarter: 2023Q4

REPORT INFORMATION
  Report Type: Spontaneous
  Country: US (occurrence: US)
  Receive Date: 20230823
  Receipt Date: 20231003
  Transmission Date: 20240110
  Serious: Yes (Other)
  Sender: FDA-Public Use
  Company Number: US-Stemline Therapeutics, Inc.-2023ST002223

PATIENT
  Age: 59 Year
  Sex: Female

DRUGS (2)
  1. ORSERDU [Suspect]
     Active Substance: ELACESTRANT
     Indication: Product used for unknown indication
     Dosage: 345MG ORAL
     Route: 048
     Dates: start: 20230601
  2. ORSERDU [Suspect]
     Active Substance: ELACESTRANT
     Dosage: 345MG ORAL
     Route: 048
     Dates: start: 20230601

REACTIONS (5)
  - Metastases to spine [Not Recovered/Not Resolved]
  - Metastases to liver [Not Recovered/Not Resolved]
  - Carbohydrate antigen 27.29 increased [Not Recovered/Not Resolved]
  - Hernia repair [Not Recovered/Not Resolved]
  - Nausea [Unknown]
